FAERS Safety Report 6788983-6 (Version None)
Quarter: 2010Q2

REPORT INFORMATION
  Report Type: 
  Country: None (occurrence: None)
  Receive Date: 20100623
  Receipt Date: 20080616
  Transmission Date: 20101027
  Serious: No
  Sender: FDA-Public Use
  Company Number: US-PFIZER INC-2008050697

PATIENT
  Sex: Female
  Weight: 122.7 kg

DRUGS (10)
  1. GEODON [Suspect]
     Indication: BIPOLAR DISORDER
     Dates: start: 20080610
  2. GEODON [Suspect]
     Indication: ANGER
  3. CORTISONE [Suspect]
     Indication: ARTHRALGIA
  4. SEROQUEL [Concomitant]
  5. LEVOTHYROXINE SODIUM [Concomitant]
  6. CYMBALTA [Concomitant]
  7. KLONOPIN [Concomitant]
  8. CHONDROITIN/GLUCOSAMINE [Concomitant]
  9. LIPITOR [Concomitant]
  10. NORVASC [Concomitant]

REACTIONS (1)
  - BLOOD GLUCOSE INCREASED [None]
